FAERS Safety Report 8541768-2 (Version None)
Quarter: 2012Q3

REPORT INFORMATION
  Report Type: 
  Country: None (occurrence: None)
  Receive Date: 20120726
  Receipt Date: 20110907
  Transmission Date: 20120928
  Serious: No
  Sender: FDA-Public Use
  Company Number: US-ASTRAZENECA-2011SE52222

PATIENT
  Age: 21 Year
  Sex: Male
  Weight: 75.7 kg

DRUGS (3)
  1. SEROQUEL [Suspect]
     Indication: ATTENTION DEFICIT/HYPERACTIVITY DISORDER
     Route: 048
     Dates: end: 20090101
  2. SEROQUEL [Suspect]
     Route: 048
     Dates: start: 20090101
  3. ABILUFIDE [Concomitant]
     Indication: DEPRESSION
     Route: 048

REACTIONS (9)
  - THERAPEUTIC RESPONSE UNEXPECTED [None]
  - TREMOR [None]
  - NERVOUSNESS [None]
  - DRUG INEFFECTIVE FOR UNAPPROVED INDICATION [None]
  - OFF LABEL USE [None]
  - INSOMNIA [None]
  - HOSTILITY [None]
  - DRUG DOSE OMISSION [None]
  - AGGRESSION [None]
